FAERS Safety Report 18748036 (Version 1)
Quarter: 2021Q1

REPORT INFORMATION
  Report Type: Report from Study
  Country: US (occurrence: US)
  Receive Date: 20210115
  Receipt Date: 20210115
  Transmission Date: 20210419
  Serious: Yes (Hospitalization, Other)
  Sender: FDA-Public Use
  Company Number: US-TEVA-2021-US-1868456

PATIENT
  Age: 72 Year
  Sex: Female
  Weight: 72.6 kg

DRUGS (6)
  1. PEPCID [Concomitant]
     Active Substance: FAMOTIDINE
     Route: 065
     Dates: start: 2016
  2. CYTARABINE. [Suspect]
     Active Substance: CYTARABINE
     Dosage: 180 MILLIGRAM DAILY; BY CONTINUOUS INFUSION
     Route: 041
     Dates: start: 20190426, end: 20190604
  3. CYTARABINE. [Suspect]
     Active Substance: CYTARABINE
     Indication: ACUTE MYELOID LEUKAEMIA
     Dosage: OVER 3 HOURS TWICE DAILY ON DAYS 1, 3, 5 CONSOLIDATION WITH SINGLE AGENT CYTARABINE
     Route: 042
     Dates: start: 20190702, end: 20190705
  4. ACYCLOVIR. [Concomitant]
     Active Substance: ACYCLOVIR
     Route: 065
     Dates: start: 20190524
  5. DAUNORUBICIN [Suspect]
     Active Substance: DAUNORUBICIN
     Indication: ACUTE MYELOID LEUKAEMIA
     Dosage: 110 MILLIGRAM DAILY; INDUCTION
     Route: 041
     Dates: start: 20190426, end: 20190531
  6. LOPRESSOR [Concomitant]
     Active Substance: METOPROLOL TARTRATE
     Route: 065
     Dates: start: 20190524

REACTIONS (1)
  - Febrile neutropenia [Recovered/Resolved]

NARRATIVE: CASE EVENT DATE: 20190717
